FAERS Safety Report 9913100 (Version 2)
Quarter: 2014Q1

REPORT INFORMATION
  Report Type: Spontaneous
  Country: MX (occurrence: None)
  Receive Date: 20140214
  Receipt Date: 20140224
  Transmission Date: 20141002
  Serious: Yes (Death, Hospitalization)
  Sender: FDA-Public Use
  Company Number: ALLO20140002

PATIENT
  Age: 49 Year
  Sex: Male

DRUGS (5)
  1. ALLOPURINOL [Suspect]
     Indication: RENAL FAILURE CHRONIC
     Route: 048
  2. FUROSEMIDE TABLETS 20 MG (FUOSEMIDE) (20 MILLIGRAM, TABLETS) (FUROSEMIDE) [Concomitant]
  3. CALCITRIOL (CALCITRIOL) (CALCITRIOL) [Concomitant]
  4. ENALAPRIL (ENALAPRIL) [Concomitant]
  5. FERROUS FUMARATE (FERROUS FUMARATE) [Concomitant]

REACTIONS (17)
  - Drug reaction with eosinophilia and systemic symptoms [None]
  - Cough [None]
  - General physical health deterioration [None]
  - Tachycardia [None]
  - Tachypnoea [None]
  - Hypotension [None]
  - Disorientation [None]
  - Rales [None]
  - Blood glucose increased [None]
  - Acute hepatic failure [None]
  - Respiratory failure [None]
  - Metabolic acidosis [None]
  - Drug reaction with eosinophilia and systemic symptoms [None]
  - Body temperature increased [None]
  - Lichenoid keratosis [None]
  - Apoptosis [None]
  - Epidermal necrosis [None]
